FAERS Safety Report 8830996 (Version 1)
Quarter: 2012Q4

REPORT INFORMATION
  Report Type: 
  Country: BR (occurrence: BR)
  Receive Date: 20121008
  Receipt Date: 20121008
  Transmission Date: 20130627
  Serious: Yes (Other)
  Sender: FDA-Public Use
  Company Number: BR-PFIZER INC-2012246378

PATIENT
  Age: 69 Year
  Sex: Female

DRUGS (1)
  1. ALDACTONE [Suspect]
     Dosage: 25 mg, 1x/day
     Route: 048
     Dates: start: 20041003

REACTIONS (1)
  - Cardiac disorder [Unknown]
